FAERS Safety Report 16827422 (Version 2)
Quarter: 2021Q2

REPORT INFORMATION
  Report Type: Report from Study
  Country: None (occurrence: CA)
  Receive Date: 20190919
  Receipt Date: 20210601
  Transmission Date: 20210716
  Serious: Yes (Other)
  Sender: FDA-Public Use
  Company Number: CA-ABBVIE-19K-028-2926237-00

PATIENT
  Sex: Female

DRUGS (1)
  1. HUMIRA [Suspect]
     Active Substance: ADALIMUMAB
     Indication: RHEUMATOID ARTHRITIS
     Route: 058
     Dates: start: 20120308

REACTIONS (10)
  - Pain in extremity [Unknown]
  - Blood creatinine increased [Recovered/Resolved]
  - Pain [Unknown]
  - Peritoneal dialysis [Not Recovered/Not Resolved]
  - Clostridium difficile infection [Unknown]
  - Arthralgia [Unknown]
  - Blood creatinine increased [Recovered/Resolved]
  - Device related infection [Not Recovered/Not Resolved]
  - Gait inability [Not Recovered/Not Resolved]
  - Pain in extremity [Recovered/Resolved]

NARRATIVE: CASE EVENT DATE: 2015
